FAERS Safety Report 7525256-8 (Version None)
Quarter: 2011Q2

REPORT INFORMATION
  Report Type: 
  Country: None (occurrence: None)
  Receive Date: 20110602
  Receipt Date: 20110602
  Transmission Date: 20111010
  Serious: Yes (Death)
  Sender: FDA-Public Use
  Company Number: None

PATIENT
  Sex: Male
  Weight: 134.7183 kg

DRUGS (1)
  1. BENDAMUSTINE 120 MG/M2 CEPHALON [Suspect]
     Indication: LUNG NEOPLASM MALIGNANT
     Dosage: 240 MG IV
     Route: 042
     Dates: start: 20100614, end: 20100615

REACTIONS (4)
  - PLEURAL EFFUSION [None]
  - LUNG INFILTRATION [None]
  - DYSPNOEA [None]
  - PLATELET COUNT DECREASED [None]
